FAERS Safety Report 7015627-0 (Version None)
Quarter: 2010Q3

REPORT INFORMATION
  Report Type: 
  Country: None (occurrence: None)
  Receive Date: 20100927
  Receipt Date: 20100920
  Transmission Date: 20110219
  Serious: Yes (Hospitalization)
  Sender: FDA-Public Use
  Company Number: US-BRISTOL-MYERS SQUIBB COMPANY-15278922

PATIENT
  Age: 72 Year
  Sex: Male
  Weight: 92 kg

DRUGS (6)
  1. DASATINIB [Suspect]
     Indication: NON-SMALL CELL LUNG CANCER
     Route: 048
     Dates: start: 20100813, end: 20100916
  2. FLOMAX [Concomitant]
     Route: 048
  3. PRILOSEC [Concomitant]
     Route: 048
  4. ALBUTEROL [Concomitant]
     Dosage: 1 DF:2 PUFFS
     Route: 055
  5. MESALAMINE [Concomitant]
     Route: 048
  6. PREDNISONE [Concomitant]
     Route: 048

REACTIONS (5)
  - DECREASED APPETITE [None]
  - DEHYDRATION [None]
  - DYSPNOEA [None]
  - FATIGUE [None]
  - OCULAR HYPERAEMIA [None]
